FAERS Safety Report 9824184 (Version 1)
Quarter: 2014Q1

REPORT INFORMATION
  Report Type: Spontaneous
  Country: JP (occurrence: JP)
  Receive Date: 20140116
  Receipt Date: 20140116
  Transmission Date: 20141002
  Serious: Yes (Hospitalization)
  Sender: FDA-Public Use
  Company Number: JP-GLAXOSMITHKLINE-B0959946A

PATIENT
  Sex: Male

DRUGS (1)
  1. SERETIDE (50MCG/250MCG) [Suspect]
     Indication: ASTHMA
     Route: 055
     Dates: end: 201312

REACTIONS (3)
  - Asthma [Recovering/Resolving]
  - Asthma [Recovering/Resolving]
  - Asthma [Recovering/Resolving]
